FAERS Safety Report 8941634 (Version 2)
Quarter: 2016Q2

REPORT INFORMATION
  Report Type: Report from Study
  Country: FR (occurrence: FR)
  Receive Date: 20121203
  Receipt Date: 20160629
  Transmission Date: 20160815
  Serious: Yes (Other)
  Sender: FDA-Public Use
  Company Number: FR-ROCHE-1014807

PATIENT
  Age: 16 Year
  Sex: Female

DRUGS (5)
  1. SOMATROPIN [Suspect]
     Active Substance: SOMATROPIN
     Indication: GROWTH RETARDATION
     Route: 058
     Dates: start: 20071201, end: 20110110
  2. FERROSTRANE [Concomitant]
     Active Substance: SODIUM FEREDETATE
     Dosage: 2 SPOONS
     Route: 065
     Dates: start: 20110222
  3. SOMATROPIN [Suspect]
     Active Substance: SOMATROPIN
     Indication: PRODUCT USE ISSUE
  4. SINGULAIR [Concomitant]
     Active Substance: MONTELUKAST SODIUM
     Route: 065
     Dates: start: 20090728
  5. CLARITINE [Concomitant]
     Active Substance: LORATADINE
     Dosage: 1 SPOON
     Route: 065
     Dates: start: 20101026

REACTIONS (2)
  - Large intestine polyp [Unknown]
  - Colon dysplasia [Unknown]

NARRATIVE: CASE EVENT DATE: 201107
